FAERS Safety Report 8122073-5 (Version None)
Quarter: 2012Q1

REPORT INFORMATION
  Report Type: 
  Country: None (occurrence: None)
  Receive Date: 20120207
  Receipt Date: 20120207
  Transmission Date: 20120608
  Serious: No
  Sender: FDA-Public Use
  Company Number: None

PATIENT
  Sex: Female
  Weight: 58.9676 kg

DRUGS (1)
  1. ASPIRIN [Suspect]
     Indication: CARDIAC DISORDER
     Dosage: 81 MG LNK INTERNATIONAL (631) 435-3500
     Dates: start: 20111101, end: 20120101

REACTIONS (2)
  - STOMATITIS [None]
  - REACTION TO AZO-DYES [None]
